FAERS Safety Report 6944997-4 (Version None)
Quarter: 2010Q3

REPORT INFORMATION
  Report Type: 
  Country: None (occurrence: None)
  Receive Date: 20100827
  Receipt Date: 20100817
  Transmission Date: 20110219
  Serious: Yes (Death)
  Sender: FDA-Public Use
  Company Number: CH-PFIZER INC-2010103097

PATIENT
  Age: 43 Year
  Sex: Male

DRUGS (2)
  1. CAMPTOSAR [Suspect]
     Indication: CHEMOTHERAPY
     Dosage: FIRST CYCLE
     Route: 042
     Dates: start: 20100330
  2. CAMPTOSAR [Suspect]
     Dosage: 130 MG, 1X/DAY
     Route: 042
     Dates: start: 20100723, end: 20100723

REACTIONS (7)
  - ANAEMIA [None]
  - EPILEPSY [None]
  - HYPERGLYCAEMIA [None]
  - HYPERTENSION [None]
  - NO THERAPEUTIC RESPONSE [None]
  - OROPHARYNGEAL CANDIDIASIS [None]
  - TREMOR [None]
